FAERS Safety Report 22592597 (Version 2)
Quarter: 2023Q2

REPORT INFORMATION
  Report Type: Spontaneous
  Country: IT (occurrence: None)
  Receive Date: 20230613
  Receipt Date: 20230623
  Transmission Date: 20230721
  Serious: Yes (Death, Hospitalization)
  Sender: FDA-Public Use
  Company Number: IT-ROCHE-3364392

PATIENT
  Age: 6 Year
  Sex: Male
  Weight: 15.5 kg

DRUGS (1)
  1. EVRYSDI [Suspect]
     Active Substance: RISDIPLAM
     Indication: Spinal muscular atrophy
     Route: 065

REACTIONS (2)
  - Respiratory disorder [Fatal]
  - Pyrexia [Fatal]

NARRATIVE: CASE EVENT DATE: 20230602
